FAERS Safety Report 7484836-9 (Version None)
Quarter: 2011Q2

REPORT INFORMATION
  Report Type: 
  Country: None (occurrence: None)
  Receive Date: 20110517
  Receipt Date: 20100908
  Transmission Date: 20111010
  Serious: Yes (Other)
  Sender: FDA-Public Use
  Company Number: US-BAYER-201019731NA

PATIENT
  Age: 31 Year
  Sex: Female

DRUGS (9)
  1. COMPAZINE [Concomitant]
     Dosage: UNK
     Route: 042
     Dates: start: 20080721, end: 20080721
  2. TOPAMAX [Concomitant]
  3. NUBAIN [Concomitant]
     Dosage: UNK
     Dates: start: 20080721, end: 20080721
  4. YAZ [Suspect]
     Indication: PRODUCT USED FOR UNKNOWN INDICATION
     Dosage: UNK
     Route: 048
     Dates: start: 20070101, end: 20080101
  5. PREVACID [Concomitant]
  6. ORTHO EVRA [Concomitant]
     Dosage: UNK
     Dates: start: 20080801, end: 20090201
  7. YASMIN [Suspect]
     Indication: PRODUCT USED FOR UNKNOWN INDICATION
     Dosage: UNK
     Route: 048
     Dates: start: 20070101, end: 20080101
  8. I.V. SOLUTIONS [Concomitant]
     Dosage: UNK
     Dates: start: 20080721, end: 20080721
  9. COMPAZINE [Concomitant]
     Dosage: UNK
     Dates: start: 20080701

REACTIONS (6)
  - BILIARY DYSKINESIA [None]
  - VOMITING [None]
  - CHOLECYSTITIS CHRONIC [None]
  - ABDOMINAL PAIN UPPER [None]
  - NAUSEA [None]
  - DIARRHOEA [None]
